FAERS Safety Report 15402521 (Version 6)
Quarter: 2019Q4

REPORT INFORMATION
  Report Type: Report from Study
  Country: US (occurrence: US)
  Receive Date: 20180919
  Receipt Date: 20191113
  Transmission Date: 20200122
  Serious: Yes (Other)
  Sender: FDA-Public Use
  Company Number: PHEH2018US037853

PATIENT
  Age: 23 Year
  Sex: Female
  Weight: 58.5 kg

DRUGS (2)
  1. VITAMIN D3 [Concomitant]
     Active Substance: CHOLECALCIFEROL
     Indication: TUBEROUS SCLEROSIS COMPLEX
     Dosage: 2000 U, DAILY
     Route: 048
  2. AFINITOR [Suspect]
     Active Substance: EVEROLIMUS
     Indication: ANGIOMYOLIPOMA
     Dosage: 10 MG, QD
     Route: 048
     Dates: start: 20131031

REACTIONS (8)
  - Menstrual disorder [Recovered/Resolved]
  - Sinus congestion [Not Recovered/Not Resolved]
  - Tooth abscess [Recovered/Resolved]
  - Abscess oral [Recovered/Resolved]
  - Mouth ulceration [Recovered/Resolved]
  - Wheezing [Not Recovered/Not Resolved]
  - Dyspnoea [Recovering/Resolving]
  - Pulmonary congestion [Not Recovered/Not Resolved]

NARRATIVE: CASE EVENT DATE: 201807
